FAERS Safety Report 15247292 (Version 4)
Quarter: 2018Q3

REPORT INFORMATION
  Report Type: Report from Study
  Country: CA (occurrence: CA)
  Receive Date: 20180807
  Receipt Date: 20180925
  Transmission Date: 20181010
  Serious: Yes (Hospitalization)
  Sender: FDA-Public Use
  Company Number: CA-UCBSA-2018031184

PATIENT
  Sex: Male
  Weight: 83 kg

DRUGS (14)
  1. EPSOM SALT [Concomitant]
     Active Substance: MAGNESIUM SULFATE
     Indication: PSORIASIS
  2. CERTOLIZUMAB PEGOL [Suspect]
     Active Substance: CERTOLIZUMAB PEGOL
     Dosage: 200 MG, EV 2 WEEKS(QOW)
     Route: 058
     Dates: start: 20160722, end: 201610
  3. URICOL [Concomitant]
     Indication: GOUT
     Dosage: 80 MG, ONCE DAILY (QD)
     Dates: start: 20150828
  4. ROBAXACET [Concomitant]
     Active Substance: ACETAMINOPHEN\METHOCARBAMOL
     Indication: ARTHRITIS
     Dosage: 1 MG, AS NEEDED (PRN)
     Route: 048
     Dates: start: 1989
  5. IBUPROFEN. [Concomitant]
     Active Substance: IBUPROFEN
     Indication: ARTHRITIS
     Dosage: 400 MG, 2X/DAY (BID)
     Route: 048
     Dates: start: 201504
  6. CERTOLIZUMAB PEGOL [Suspect]
     Active Substance: CERTOLIZUMAB PEGOL
     Indication: PSORIASIS
     Dosage: 200 MG, EV 2 WEEKS(QOW)
     Route: 058
     Dates: start: 20150821, end: 201512
  7. CERTOLIZUMAB PEGOL [Suspect]
     Active Substance: CERTOLIZUMAB PEGOL
     Dosage: 200 MG, EV 2 WEEKS(QOW)
     Route: 058
     Dates: start: 20151211, end: 201607
  8. CERTOLIZUMAB PEGOL [Suspect]
     Active Substance: CERTOLIZUMAB PEGOL
     Dosage: 400 MG, EV 2 WEEKS(QOW)
     Route: 058
     Dates: start: 20161017, end: 20180511
  9. INDOMETHACIN. [Concomitant]
     Active Substance: INDOMETHACIN
     Indication: BACK PAIN
     Dosage: 50 MG, AS NEEDED (PRN)
     Route: 048
     Dates: start: 2003
  10. TYLENOL EXTRA STRENGTH [Concomitant]
     Active Substance: ACETAMINOPHEN
     Indication: BACK PAIN
     Dosage: 500 MG, AS NEEDED (PRN)
     Route: 048
     Dates: start: 2003
  11. OMEPRAZOLE. [Concomitant]
     Active Substance: OMEPRAZOLE
     Indication: PROPHYLAXIS
     Dosage: 20 MG, ONCE DAILY (QD)
     Dates: start: 20150828
  12. ADVAIR HFA [Concomitant]
     Active Substance: FLUTICASONE PROPIONATE\SALMETEROL XINAFOATE
     Indication: HYPERSENSITIVITY
     Dosage: UNK (1 PUFF), AS NEEDED (PRN)
     Dates: start: 2011
  13. AVEENO [Concomitant]
     Active Substance: DIMETHICONE\HOMOSALATE\OCTINOXATE\OCTISALATE\TITANIUM DIOXIDE
     Indication: PSORIASIS
     Dosage: UNK(1 APPLICATION), AS NEEDED (PRN)
     Route: 061
     Dates: start: 201407
  14. BETADERM [Concomitant]
     Active Substance: BETAMETHASONE VALERATE
     Indication: PSORIASIS
     Dosage: UNK, (1 APPLICATION) AS NEEDED (PRN)
     Route: 061
     Dates: start: 20170109

REACTIONS (2)
  - Pyoderma gangrenosum [Not Recovered/Not Resolved]
  - Gout [Not Recovered/Not Resolved]

NARRATIVE: CASE EVENT DATE: 20180707
